FAERS Safety Report 23628999 (Version 1)
Quarter: 2024Q1

REPORT INFORMATION
  Report Type: Spontaneous
  Country: JP (occurrence: JP)
  Receive Date: 20240313
  Receipt Date: 20240313
  Transmission Date: 20240409
  Serious: Yes (Other)
  Sender: FDA-Public Use
  Company Number: JP-MSD-M2023-46966

PATIENT
  Age: 84 Year
  Sex: Male

DRUGS (1)
  1. KEYTRUDA [Suspect]
     Active Substance: PEMBROLIZUMAB
     Indication: Salivary gland cancer stage IV
     Dosage: 200 MILLIGRAM, Q3W
     Route: 041
     Dates: start: 20220105, end: 20220809

REACTIONS (3)
  - Pulmonary toxicity [Recovering/Resolving]
  - Pneumonia bacterial [Unknown]
  - Lymphocyte stimulation test positive [Unknown]

NARRATIVE: CASE EVENT DATE: 20220830
